FAERS Safety Report 5122549-9 (Version None)
Quarter: 2006Q4

REPORT INFORMATION
  Report Type: 
  Country: None (occurrence: None)
  Receive Date: 20061005
  Receipt Date: 20061005
  Transmission Date: 20070319
  Serious: Yes (Death)
  Sender: FDA-Public Use
  Company Number: None

PATIENT
  Age: 34 Year
  Sex: Male
  Weight: 86.1834 kg

DRUGS (1)
  1. METHADONE HCL [Suspect]
     Indication: PAIN
     Dosage: 30 MG 3 TIMES A DAY PO
     Route: 048
     Dates: start: 20060323, end: 20060324

REACTIONS (2)
  - DRUG TOXICITY [None]
  - FATIGUE [None]
